FAERS Safety Report 4652756-0 (Version None)
Quarter: 2005Q2

REPORT INFORMATION
  Report Type: 
  Country: None (occurrence: None)
  Receive Date: 20050503
  Receipt Date: 20050422
  Transmission Date: 20051028
  Serious: Yes (Hospitalization)
  Sender: FDA-Public Use
  Company Number: PERIO-2005-0037

PATIENT
  Sex: Female

DRUGS (1)
  1. DOXYCYCLINE HYCLATE [Suspect]
     Indication: PERIODONTAL DISEASE
     Dosage: 20 MG, BID, PER ORAL
     Route: 048
     Dates: start: 20040901

REACTIONS (1)
  - ABDOMINAL PAIN UPPER [None]
